FAERS Safety Report 8593631 (Version 2)
Quarter: 2012Q4

REPORT INFORMATION
  Report Type: 
  Country: US (occurrence: US)
  Receive Date: 20120604
  Receipt Date: 20121019
  Transmission Date: 20130627
  Serious: Yes (Hospitalization, Other)
  Sender: FDA-Public Use
  Company Number: US-BAYER-2012-053885

PATIENT
  Age: 22 Year
  Sex: Female
  Weight: 99.77 kg

DRUGS (4)
  1. YAZ [Suspect]
     Dosage: UNK
     Dates: start: 201002, end: 201005
  2. YASMIN [Suspect]
     Dosage: UNK
     Dates: start: 201002, end: 201005
  3. TYLENOL [Concomitant]
  4. NORCO [Concomitant]

REACTIONS (5)
  - Deep vein thrombosis [None]
  - Pulmonary embolism [None]
  - Pulmonary embolism [None]
  - Deep vein thrombosis [None]
  - Pain [None]
